FAERS Safety Report 10486939 (Version 3)
Quarter: 2014Q4

REPORT INFORMATION
  Report Type: Spontaneous
  Country: DE (occurrence: DE)
  Receive Date: 20141001
  Receipt Date: 20141024
  Transmission Date: 20150528
  Serious: Yes (Other)
  Sender: FDA-Public Use
  Company Number: DE-BAYER-2014-113953

PATIENT
  Age: 69 Year
  Sex: Male
  Weight: 98 kg

DRUGS (8)
  1. AMLODIPIN [Concomitant]
     Active Substance: AMLODIPINE BESYLATE
     Dosage: UNK
     Dates: start: 2010
  2. XARELTO [Interacting]
     Active Substance: RIVAROXABAN
     Dosage: UNK, QD
     Dates: start: 2010, end: 20140722
  3. RAMIPRIL. [Concomitant]
     Active Substance: RAMIPRIL
     Indication: HYPERTENSION
     Dosage: UNK
     Dates: start: 2010
  4. MAGNESIUM GLUCONATE [Concomitant]
     Active Substance: MAGNESIUM GLUCONATE
     Dosage: UNK
     Dates: start: 2010
  5. ASPIRIN. [Suspect]
     Active Substance: ASPIRIN
     Dosage: UNK
     Dates: start: 2010, end: 20140922
  6. ASPIRIN. [Interacting]
     Active Substance: ASPIRIN
     Dosage: UNK
     Dates: start: 201405, end: 20140722
  7. ATORVASTATIN [Concomitant]
     Active Substance: ATORVASTATIN
     Dosage: UNK
     Dates: start: 2010, end: 20140805
  8. CRESTOR [Concomitant]
     Active Substance: ROSUVASTATIN CALCIUM
     Dosage: UNK
     Dates: start: 2010

REACTIONS (12)
  - Erythema [Recovered/Resolved]
  - Skin haemorrhage [Recovered/Resolved]
  - Intestinal haemorrhage [Recovered/Resolved]
  - Traumatic haemorrhage [Recovered/Resolved]
  - Memory impairment [Recovered/Resolved]
  - Apathy [Recovered/Resolved]
  - Aggression [Recovered/Resolved]
  - Toxicity to various agents [None]
  - Surgery [None]
  - Impaired healing [Recovered/Resolved]
  - Abnormal behaviour [Recovered/Resolved]
  - Labelled drug-drug interaction medication error [None]

NARRATIVE: CASE EVENT DATE: 2010
